FAERS Safety Report 16431672 (Version 2)
Quarter: 2019Q2

REPORT INFORMATION
  Report Type: Spontaneous
  Country: US (occurrence: US)
  Receive Date: 20190614
  Receipt Date: 20190626
  Transmission Date: 20190711
  Serious: No
  Sender: FDA-Public Use
  Company Number: US-KRAMERLABS-2019-US-003501

PATIENT
  Age: 85 Year
  Sex: Male
  Weight: 104.33 kg

DRUGS (2)
  1. LANTUS [Concomitant]
     Active Substance: INSULIN GLARGINE
     Dosage: ONCE A DAY IN THE EVENING
     Route: 065
  2. NIZORAL A-D [Suspect]
     Active Substance: KETOCONAZOLE
     Indication: ROSACEA
     Route: 061

REACTIONS (2)
  - Product dose omission [Unknown]
  - Weight decreased [Unknown]
